FAERS Safety Report 6975432-8 (Version None)
Quarter: 2010Q3

REPORT INFORMATION
  Report Type: 
  Country: None (occurrence: None)
  Receive Date: 20100910
  Receipt Date: 20100830
  Transmission Date: 20110219
  Serious: Yes (Hospitalization, Other)
  Sender: FDA-Public Use
  Company Number: US-BAYER-201030353NA

PATIENT
  Age: 46 Year
  Sex: Female
  Weight: 97 kg

DRUGS (4)
  1. MIRENA [Suspect]
     Indication: MENORRHAGIA
     Dosage: START DATE WAS REPORTED WITH INCONSISTENCIES (2 YEARS PRIOR TO REPORT AND ON FEB-2010)
     Route: 015
     Dates: start: 20100224, end: 20100819
  2. MEDICATIONS [Concomitant]
     Indication: DEPRESSION
  3. PROZAC [Concomitant]
     Indication: DEPRESSION
     Dosage: TOTAL DAILY DOSE: 80 MG  UNIT DOSE: 40 MG
     Route: 048
     Dates: start: 20030501
  4. LUNESTA [Concomitant]
     Indication: INSOMNIA
     Route: 048
     Dates: start: 20100301

REACTIONS (12)
  - ABDOMINAL PAIN [None]
  - ABNORMAL BEHAVIOUR [None]
  - ANXIETY DISORDER [None]
  - B-CELL SMALL LYMPHOCYTIC LYMPHOMA [None]
  - DECREASED APPETITE [None]
  - FATIGUE [None]
  - FEELING ABNORMAL [None]
  - FEMALE SEXUAL DYSFUNCTION [None]
  - HAEMORRHAGIC ANAEMIA [None]
  - NIGHT SWEATS [None]
  - PANIC ATTACK [None]
  - WEIGHT DECREASED [None]
